FAERS Safety Report 6844308-9 (Version None)
Quarter: 2010Q3

REPORT INFORMATION
  Report Type: 
  Country: None (occurrence: None)
  Receive Date: 20100715
  Receipt Date: 20100708
  Transmission Date: 20110219
  Serious: Yes (Other)
  Sender: FDA-Public Use
  Company Number: CA-ROCHE-713747

PATIENT
  Sex: Female

DRUGS (6)
  1. PEGASYS [Suspect]
     Indication: HEPATITIS C
     Route: 058
     Dates: start: 20091015, end: 20100630
  2. COPEGUS [Suspect]
     Indication: HEPATITIS C
     Route: 048
     Dates: start: 20091015, end: 20100630
  3. FLOVENT [Concomitant]
     Indication: ASTHMA
     Dosage: TAKEN DAILY
  4. VENTOLIN [Concomitant]
     Indication: ASTHMA
     Dosage: TAKEN DAILY
  5. SEREVENT [Concomitant]
     Indication: ASTHMA
     Dosage: TAKEN DAILY
  6. LYRICA [Concomitant]
     Indication: OSTEOARTHRITIS
     Dosage: TAKEN DAILY OTHER INDICATION: ANTI-INFLAMMATORY

REACTIONS (1)
  - LUNG NEOPLASM MALIGNANT [None]
